FAERS Safety Report 18443663 (Version 11)
Quarter: 2021Q1

REPORT INFORMATION
  Report Type: Spontaneous
  Country: US (occurrence: US)
  Receive Date: 20201029
  Receipt Date: 20210309
  Transmission Date: 20210419
  Serious: Yes (Hospitalization)
  Sender: FDA-Public Use
  Company Number: US-CELGENEUS-USA-20201007096

PATIENT
  Sex: Female
  Weight: 35.87 kg

DRUGS (5)
  1. REVLIMID [Suspect]
     Active Substance: LENALIDOMIDE
     Indication: PLASMA CELL MYELOMA
     Dosage: 25 MILLIGRAM
     Route: 048
     Dates: start: 20120801
  2. REVLIMID [Suspect]
     Active Substance: LENALIDOMIDE
     Dosage: 15 MILLIGRAM
     Route: 048
     Dates: start: 20201026
  3. REVLIMID [Suspect]
     Active Substance: LENALIDOMIDE
     Indication: NEOPLASM MALIGNANT
     Dosage: 15 MILLIGRAM
     Route: 048
     Dates: start: 202007
  4. DEXAMETHASONE. [Suspect]
     Active Substance: DEXAMETHASONE
     Indication: PRODUCT USED FOR UNKNOWN INDICATION
     Route: 065
  5. NINLARO [Concomitant]
     Active Substance: IXAZOMIB CITRATE
     Indication: PRODUCT USED FOR UNKNOWN INDICATION
     Route: 065

REACTIONS (7)
  - Adverse drug reaction [Unknown]
  - Stevens-Johnson syndrome [Unknown]
  - Pruritus [Unknown]
  - Dyspnoea [Unknown]
  - Rash [Not Recovered/Not Resolved]
  - Psoriasis [Unknown]
  - Mouth swelling [Unknown]

NARRATIVE: CASE EVENT DATE: 2020
